FAERS Safety Report 6570829-2 (Version None)
Quarter: 2010Q1

REPORT INFORMATION
  Report Type: 
  Country: None (occurrence: None)
  Receive Date: 20100202
  Receipt Date: 20100202
  Transmission Date: 20100710
  Serious: Yes (Other)
  Sender: FDA-Public Use
  Company Number: None

PATIENT
  Age: 48 Year
  Sex: Male
  Weight: 72.5755 kg

DRUGS (1)
  1. LEVAQUIN [Suspect]
     Indication: SINUSITIS
     Dosage: 1 PILL 1X DAILY PO
     Route: 048
     Dates: start: 20090928, end: 20090929

REACTIONS (8)
  - BLEPHAROSPASM [None]
  - CHILLS [None]
  - FATIGUE [None]
  - FEELING ABNORMAL [None]
  - PAIN [None]
  - PAIN IN EXTREMITY [None]
  - TENDON PAIN [None]
  - TINNITUS [None]
